FAERS Safety Report 12823602 (Version 1)
Quarter: 2016Q4

REPORT INFORMATION
  Report Type: Spontaneous
  Country: US (occurrence: US)
  Receive Date: 20161007
  Receipt Date: 20161007
  Transmission Date: 20170207
  Serious: Yes (Other)
  Sender: FDA-Public Use
  Company Number: US-ARBOR PHARMACEUTICALS, LLC-US-2016ARB002101

PATIENT

DRUGS (1)
  1. HORIZANT [Suspect]
     Active Substance: GABAPENTIN ENACARBIL
     Indication: NEURALGIA
     Dosage: UNK

REACTIONS (4)
  - Pain [Unknown]
  - Product use issue [Unknown]
  - Nausea [Unknown]
  - Activities of daily living impaired [Unknown]
